FAERS Safety Report 5833695-6 (Version None)
Quarter: 2008Q3

REPORT INFORMATION
  Report Type: 
  Country: None (occurrence: None)
  Receive Date: 20080722
  Receipt Date: 20070809
  Transmission Date: 20090109
  Serious: Yes (Other)
  Sender: FDA-Public Use
  Company Number: 2007BI016997

PATIENT
  Age: 33 Year
  Sex: Female
  Weight: 81.6475 kg

DRUGS (4)
  1. AVONEX [Suspect]
     Indication: MULTIPLE SCLEROSIS
     Dosage: 30 UG; QW; IM; 30 UG; QW;IM
     Route: 030
     Dates: start: 19960101, end: 19990101
  2. AVONEX [Suspect]
     Indication: MULTIPLE SCLEROSIS
     Dosage: 30 UG; QW; IM; 30 UG; QW;IM
     Route: 030
     Dates: start: 20001201, end: 20030101
  3. AVONEX [Suspect]
     Indication: MULTIPLE SCLEROSIS
     Dosage: 30 UG; QW; IM
     Route: 030
     Dates: start: 20030101
  4. CELEXA [Concomitant]

REACTIONS (4)
  - CONVULSION [None]
  - INJECTION SITE PAIN [None]
  - MULTIPLE SCLEROSIS RELAPSE [None]
  - WEIGHT INCREASED [None]
